FAERS Safety Report 6219357-4 (Version None)
Quarter: 2009Q2

REPORT INFORMATION
  Report Type: 
  Country: None (occurrence: None)
  Receive Date: 20090605
  Receipt Date: 20090605
  Transmission Date: 20091009
  Serious: Yes (Life-Threatening, Hospitalization)
  Sender: FDA-Public Use
  Company Number: None

PATIENT
  Age: 30 Year
  Sex: Female
  Weight: 107.7 kg

DRUGS (2)
  1. ORTHO TRI-CYCLEN [Suspect]
     Indication: MIGRAINE
     Dosage: 1 TAB DAILY PO SEVERAL YEARS
     Route: 048
  2. ORTHO TRI-CYCLEN [Suspect]
     Indication: OVARIAN CYST
     Dosage: 1 TAB DAILY PO SEVERAL YEARS
     Route: 048

REACTIONS (1)
  - PULMONARY EMBOLISM [None]
